FAERS Safety Report 4570564-6 (Version None)
Quarter: 2005Q1

REPORT INFORMATION
  Report Type: 
  Country: None (occurrence: None)
  Receive Date: 20050202
  Receipt Date: 20050120
  Transmission Date: 20050727
  Serious: No
  Sender: FDA-Public Use
  Company Number: 2005-BP-00915RO

PATIENT
  Age: 51 Year
  Sex: Female

DRUGS (4)
  1. ENDOXANA (CYCLOPHOSPHAMIDE) [Suspect]
     Indication: BREAST CANCER
  2. METHOTREXATE [Suspect]
     Indication: BREAST CANCER
  3. FLUOROURACIL [Suspect]
     Indication: BREAST CANCER
  4. TAMOXIFEN (TAMOXIFEN) [Suspect]
     Indication: BREAST CANCER

REACTIONS (3)
  - ANKLE BRACHIAL INDEX DECREASED [None]
  - PERIPHERAL ISCHAEMIA [None]
  - PULSE ABSENT [None]
